FAERS Safety Report 4896224-X (Version None)
Quarter: 2006Q1

REPORT INFORMATION
  Report Type: 
  Country: None (occurrence: None)
  Receive Date: 20060126
  Receipt Date: 20060113
  Transmission Date: 20060701
  Serious: Yes (Other)
  Sender: FDA-Public Use
  Company Number: 2006008865

PATIENT
  Sex: Female
  Weight: 70.7611 kg

DRUGS (3)
  1. LIPITOR [Suspect]
     Indication: ILL-DEFINED DISORDER
     Dosage: 10 MG
     Dates: end: 20050801
  2. BOOST (BIOTIN, CARBOHYDRATES NOS, FATS NOS, MINERALS NOS, POTASSIUM PR [Suspect]
     Indication: MEDICAL DIET
     Dates: start: 20050101
  3. PREMARIN [Concomitant]

REACTIONS (3)
  - BLOOD TRIGLYCERIDES INCREASED [None]
  - RADIATION INJURY [None]
  - TONGUE NEOPLASM MALIGNANT STAGE UNSPECIFIED [None]
